FAERS Safety Report 6261113-5 (Version None)
Quarter: 2009Q3

REPORT INFORMATION
  Report Type: 
  Country: None (occurrence: None)
  Receive Date: 20090709
  Receipt Date: 20090114
  Transmission Date: 20100115
  Serious: No
  Sender: FDA-Public Use
  Company Number: US-KINGPHARMUSA00001-K200900029

PATIENT
  Age: 67 Year
  Sex: Female

DRUGS (1)
  1. LEVOXYL [Suspect]

REACTIONS (1)
  - ALOPECIA [None]
